FAERS Safety Report 15018725 (Version 1)
Quarter: 2018Q2

REPORT INFORMATION
  Report Type: Report from Study
  Country: None (occurrence: FR)
  Receive Date: 20180616
  Receipt Date: 20180616
  Transmission Date: 20180711
  Serious: Yes (Disabling, Other)
  Sender: FDA-Public Use
  Company Number: FR-ABBVIE-18K-056-2387066-00

PATIENT
  Age: 60 Year
  Sex: Male

DRUGS (2)
  1. DUODOPA [Suspect]
     Active Substance: CARBIDOPA\LEVODOPA
     Indication: PARKINSON^S DISEASE
     Route: 050
     Dates: start: 20160504
  2. DUODOPA [Suspect]
     Active Substance: CARBIDOPA\LEVODOPA
     Dosage: MD DOSE:8ML?CONTINUOUS FLOW RATE:5ML/H?EXTRA DOSE 3ML
     Route: 050

REACTIONS (3)
  - Post procedural complication [Unknown]
  - Wrong technique in device usage process [Unknown]
  - Surgery [Unknown]
